FAERS Safety Report 8661153 (Version 4)
Quarter: 2012Q4

REPORT INFORMATION
  Report Type: 
  Country: JP (occurrence: JP)
  Receive Date: 20120711
  Receipt Date: 20121220
  Transmission Date: 20130627
  Serious: Yes (Other)
  Sender: FDA-Public Use
  Company Number: JP-MSD-2012SP032678

PATIENT
  Age: 65 Year
  Sex: Male
  Weight: 64 kg

DRUGS (28)
  1. PEGINTRON POWDER FOR INJECTION 150MICROG [Suspect]
     Indication: CHRONIC HEPATITIS C
     Dosage: 1.5 Microgram per kilogram, qw
     Route: 058
     Dates: start: 20120214
  2. REBETOL [Suspect]
     Indication: CHRONIC HEPATITIS C
     Dosage: 800 mg, QD
     Route: 048
     Dates: start: 20120214, end: 20120410
  3. REBETOL [Suspect]
     Dosage: 600 mg, QD
     Route: 048
     Dates: start: 20120411, end: 20120424
  4. REBETOL [Suspect]
     Dosage: 400 mg, QD
     Route: 048
     Dates: start: 20120425, end: 20120702
  5. REBETOL [Suspect]
     Dosage: 600 mg, qd
     Route: 048
     Dates: start: 20120703
  6. TELAPREVIR [Suspect]
     Indication: CHRONIC HEPATITIS C
     Dosage: 2250 mg, qd
     Route: 048
     Dates: start: 20120214, end: 20120416
  7. TELAPREVIR [Suspect]
     Dosage: 1500 mg, QD
     Route: 048
     Dates: start: 20120417, end: 20120505
  8. JANUVIA TABLETS 50MG [Concomitant]
     Indication: TYPE 2 DIABETES MELLITUS
     Dosage: 50 mg, QD
     Route: 048
  9. GLUCOBAY [Concomitant]
     Indication: TYPE 2 DIABETES MELLITUS
     Dosage: 150 mg, QD
     Route: 048
  10. GLUFAST [Concomitant]
     Indication: TYPE 2 DIABETES MELLITUS
     Dosage: 30 mg, QD
     Route: 048
  11. MAGNESIUM OXIDE [Concomitant]
     Indication: GASTRIC CANCER
     Dosage: FORMULATION: POR
     Route: 048
  12. MAGNESIUM OXIDE [Concomitant]
     Dosage: FORMULATION: POR
     Route: 048
  13. LAC-B [Concomitant]
     Indication: PROPHYLAXIS
     Dosage: FORMULATION: FGR
     Route: 048
  14. LAC-B [Concomitant]
     Dosage: FORMULATION: POR
     Route: 048
  15. EXCELASE [Concomitant]
     Indication: GASTRIC CANCER
     Dosage: 3 DF, QD
     Route: 048
  16. EXCELASE [Concomitant]
     Dosage: 3 DF, qd
     Route: 048
  17. HERBESSER R [Concomitant]
     Indication: PRINZMETAL ANGINA
     Dosage: 100 mg, qd
     Route: 048
  18. MAALOX (ALUMINUM HYDROXIDE (+) MAGNESIUM HYDROXIDE) [Concomitant]
     Indication: PROPHYLAXIS
     Dosage: as needed
     Route: 048
  19. MAALOX (ALUMINUM HYDROXIDE (+) MAGNESIUM HYDROXIDE) [Concomitant]
     Indication: DYSPEPSIA
     Dosage: as neded,
     Route: 048
  20. LANSOPRAZOLE [Concomitant]
     Indication: PROPHYLAXIS
     Dosage: 15 mg, QD
     Route: 048
  21. LANSOPRAZOLE [Concomitant]
     Indication: GASTRITIS
     Dosage: 15 mg, qd
     Route: 048
  22. BAYASPIRIN [Concomitant]
     Indication: PRINZMETAL ANGINA
     Dosage: 100 mg, QD
     Route: 048
     Dates: end: 2012
  23. GASPORT D [Concomitant]
     Indication: PROPHYLAXIS
     Dosage: 40 mg, QD
     Route: 048
     Dates: start: 20120417, end: 20120508
  24. CRAVIT [Concomitant]
     Indication: NASOPHARYNGITIS
     Dosage: 500 mg, QD
     Route: 048
     Dates: start: 20120501, end: 20120503
  25. ISODINE [Concomitant]
     Indication: NASOPHARYNGITIS
     Dosage: FREQUENCY: SEVERAL-TIME/DAY.
     Route: 049
     Dates: start: 20120501, end: 20120507
  26. CONFATANIN [Concomitant]
     Indication: PYREXIA
     Dosage: UNK UNK, PRN
     Route: 048
     Dates: start: 20120222
  27. CONFATANIN [Concomitant]
     Indication: PROPHYLAXIS
     Dosage: 60 mg, qd,as needed
     Route: 048
  28. [COMPOSITION UNSPECIFIED] [Concomitant]
     Indication: TYPE 2 DIABETES MELLITUS
     Dosage: 20u/day
     Route: 058

REACTIONS (9)
  - Rash [Recovering/Resolving]
  - Platelet count decreased [Not Recovered/Not Resolved]
  - Haemoglobin decreased [Not Recovered/Not Resolved]
  - Abdominal discomfort [None]
  - Pyrexia [None]
  - Malaise [None]
  - Decreased appetite [None]
  - Pharyngitis [None]
  - Weight decreased [None]
